FAERS Safety Report 11449975 (Version 1)
Quarter: 2015Q3

REPORT INFORMATION
  Report Type: Spontaneous
  Country: US (occurrence: US)
  Receive Date: 20150903
  Receipt Date: 20150903
  Transmission Date: 20151125
  Serious: Yes (Other)
  Sender: FDA-Public Use
  Company Number: US-ROCHE-714705

PATIENT
  Age: 56 Year
  Sex: Male

DRUGS (4)
  1. PEGASYS [Suspect]
     Active Substance: PEGINTERFERON ALFA-2A
     Indication: HEPATITIS C
     Dosage: FORM:PREFILLED SYRINGE
     Route: 058
     Dates: start: 20100706, end: 20101209
  2. VICODIN [Concomitant]
     Active Substance: ACETAMINOPHEN\HYDROCODONE BITARTRATE
     Route: 065
  3. COPEGUS [Suspect]
     Active Substance: RIBAVIRIN
     Indication: HEPATITIS C
     Dosage: 3 IN AM AND 3 IN PM, FORM: PILLS; IN DIVIDED DOSES.
     Route: 048
     Dates: start: 20100706, end: 20101209
  4. AVODART [Concomitant]
     Active Substance: DUTASTERIDE
     Route: 065

REACTIONS (21)
  - Headache [Unknown]
  - Haemorrhage [Not Recovered/Not Resolved]
  - Hepatic pain [Recovering/Resolving]
  - Injection site rash [Unknown]
  - Oedema [Unknown]
  - Diarrhoea [Recovering/Resolving]
  - Platelet count decreased [Unknown]
  - Full blood count decreased [Unknown]
  - Dizziness [Not Recovered/Not Resolved]
  - Abdominal pain [Not Recovered/Not Resolved]
  - Fatigue [Unknown]
  - Dyspnoea [Unknown]
  - Gingival bleeding [Unknown]
  - Arthralgia [Not Recovered/Not Resolved]
  - Diarrhoea [Unknown]
  - Abdominal distension [Unknown]
  - Urine output decreased [Unknown]
  - Pain [Unknown]
  - Pruritus [Unknown]
  - Skin discolouration [Unknown]
  - Pyrexia [Recovering/Resolving]

NARRATIVE: CASE EVENT DATE: 20100706
